FAERS Safety Report 9294034 (Version 1)
Quarter: 2013Q1

REPORT INFORMATION
  Report Type: Spontaneous
  Country: US (occurrence: None)
  Receive Date: 20121218
  Receipt Date: 20121218
  Transmission Date: 20140127
  Serious: Yes (Other)
  Sender: FDA-Public Use
  Company Number: PHEH2012US015432

PATIENT
  Sex: Female
  Weight: 82 kg

DRUGS (5)
  1. FEMARA [Suspect]
     Indication: BREAST CANCER METASTATIC
  2. ADVIL (00044201/ (MOFENAMIC ACID) [Concomitant]
  3. ATIVAN (LORAZEPAM) [Concomitant]
  4. BONIVA (IBANDRONATE SODIUIM) [Concomitant]
  5. WELLBUTRIN (00700502/ (BUPROPION HYDROCHLORIDE) [Concomitant]

REACTIONS (2)
  - Neoplasm [None]
  - Malignant neoplasm progression [None]
